FAERS Safety Report 9869170 (Version 1)
Quarter: 2014Q1

REPORT INFORMATION
  Report Type: Spontaneous
  Country: SE (occurrence: SE)
  Receive Date: 20140205
  Receipt Date: 20140205
  Transmission Date: 20141002
  Serious: Yes (Hospitalization)
  Sender: FDA-Public Use
  Company Number: SE-ASTRAZENECA-2014SE07584

PATIENT
  Age: 72 Year
  Sex: Female

DRUGS (1)
  1. PLENDIL [Suspect]
     Route: 048

REACTIONS (1)
  - Venous insufficiency [Unknown]
